FAERS Safety Report 7788151-5 (Version None)
Quarter: 2011Q3

REPORT INFORMATION
  Report Type: 
  Country: None (occurrence: None)
  Receive Date: 20110927
  Receipt Date: 20110913
  Transmission Date: 20111222
  Serious: Yes (Death, Hospitalization)
  Sender: FDA-Public Use
  Company Number: 2011MA013455

PATIENT
  Age: 41 Year
  Sex: Female

DRUGS (4)
  1. EPIRUBICIN HYDROCHLORIDE [Suspect]
     Indication: T-CELL LYMPHOMA
     Dosage: 6 CYCLES
  2. VINCRISTINE [Suspect]
     Indication: T-CELL LYMPHOMA
     Dosage: 6 CYCLES
  3. CYCLOPHOSPHAMIDE [Suspect]
     Indication: T-CELL LYMPHOMA
     Dosage: 6 CYCLES
  4. PREDNISOLONE [Suspect]
     Indication: T-CELL LYMPHOMA
     Dosage: 6 CYCLES

REACTIONS (3)
  - LEUKAEMIA CUTIS [None]
  - ACUTE MYELOID LEUKAEMIA [None]
  - XANTHOGRANULOMA [None]
